FAERS Safety Report 9637951 (Version 1)
Quarter: 2013Q4

REPORT INFORMATION
  Report Type: Spontaneous
  Country: US (occurrence: US)
  Receive Date: 20131022
  Receipt Date: 20131022
  Transmission Date: 20140711
  Serious: Yes (Hospitalization, Other)
  Sender: FDA-Public Use
  Company Number: US-ELI_LILLY_AND_COMPANY-US201310004367

PATIENT
  Sex: Female

DRUGS (1)
  1. HUMALOG LISPRO [Suspect]
     Indication: TYPE 1 DIABETES MELLITUS
     Dosage: UNK

REACTIONS (6)
  - Neoplasm malignant [Unknown]
  - Thrombosis [Unknown]
  - Injection site infection [Unknown]
  - Tachycardia [Unknown]
  - Blood glucose increased [Unknown]
  - Lymphadenopathy [Unknown]
